FAERS Safety Report 9253197 (Version 1)
Quarter: 2013Q2

REPORT INFORMATION
  Report Type: Spontaneous
  Country: US (occurrence: US)
  Receive Date: 20130424
  Receipt Date: 20130424
  Transmission Date: 20140414
  Serious: Yes (Other)
  Sender: FDA-Public Use
  Company Number: US-TEVA-399955USA

PATIENT
  Age: 40 Year
  Sex: Female
  Weight: 54.48 kg

DRUGS (1)
  1. PROVIGIL [Suspect]
     Indication: FATIGUE MANAGEMENT
     Dosage: 200 MILLIGRAM DAILY;

REACTIONS (2)
  - Vaginal haemorrhage [Not Recovered/Not Resolved]
  - Off label use [Unknown]
